FAERS Safety Report 9921114 (Version 1)
Quarter: 2013Q4

REPORT INFORMATION
  Report Type: Spontaneous
  Country: IT (occurrence: None)
  Receive Date: 20131230
  Receipt Date: 20131230
  Transmission Date: 20140711
  Serious: Yes (Hospitalization)
  Sender: FDA-Public Use
  Company Number: 2013-01924

PATIENT
  Age: 85 Year
  Sex: Female

DRUGS (9)
  1. TRAMADOL (UNKNOWN) [Suspect]
     Indication: BACK PAIN
  2. INFLUENZA (VAXIGRIP) (UNKNOWN) [Suspect]
     Indication: INFLUENZA IMMUNISATION
  3. ALLOPURINOL (UNKNOWN) [Concomitant]
  4. CARVEDILOL (UNKNOWN) [Concomitant]
  5. FUROSEMIDE (UNKNOWN) [Concomitant]
  6. TELMISARTAN (UNKNOWN) [Concomitant]
  7. RANITIDINE (UNKNOWN) [Concomitant]
  8. SIMVASTATIN (UNKNOWN) (SIMVASTATIN) UNK, UNKUNK [Concomitant]
  9. BARNIDIPINE (UNKNOWN) (SIMVASTATIN) [Concomitant]

REACTIONS (4)
  - Drug interaction [None]
  - Hallucination [None]
  - Balance disorder [None]
  - Fall [None]
